FAERS Safety Report 25502981 (Version 1)
Quarter: 2025Q3

REPORT INFORMATION
  Report Type: Spontaneous
  Country: US (occurrence: US)
  Receive Date: 20250702
  Receipt Date: 20250702
  Transmission Date: 20251020
  Serious: Yes (Other)
  Sender: ALVOGEN
  Company Number: None

PATIENT

DRUGS (1)
  1. LISDEXAMFETAMINE [Suspect]
     Active Substance: LISDEXAMFETAMINE
     Indication: Product used for unknown indication

REACTIONS (8)
  - Syncope [Unknown]
  - Disturbance in attention [Unknown]
  - Executive dysfunction [Unknown]
  - Fatigue [Unknown]
  - Increased appetite [Unknown]
  - Sleep disorder [Unknown]
  - Drug ineffective [Unknown]
  - Product substitution issue [Unknown]
